FAERS Safety Report 11904134 (Version 1)
Quarter: 2016Q1

REPORT INFORMATION
  Report Type: Spontaneous
  Country: US (occurrence: US)
  Receive Date: 20160108
  Receipt Date: 20160108
  Transmission Date: 20160526
  Serious: Yes (Death)
  Sender: FDA-Public Use
  Company Number: US-ASTRAZENECA-2016SE02053

PATIENT
  Sex: Male

DRUGS (2)
  1. SEROQUEL XR [Suspect]
     Active Substance: QUETIAPINE FUMARATE
     Indication: MECHANICAL VENTILATION
     Route: 042
  2. HALDOL [Concomitant]
     Active Substance: HALOPERIDOL

REACTIONS (4)
  - Product use issue [Unknown]
  - Off label use [Unknown]
  - Incorrect route of drug administration [Unknown]
  - Death [Fatal]

NARRATIVE: CASE EVENT DATE: 20100530
